FAERS Safety Report 6590980-0 (Version None)
Quarter: 2010Q1

REPORT INFORMATION
  Report Type: 
  Country: None (occurrence: None)
  Receive Date: 20100216
  Receipt Date: 20090915
  Transmission Date: 20100710
  Serious: No
  Sender: FDA-Public Use
  Company Number: 2009-00622

PATIENT
  Age: 54 Year
  Sex: Female
  Weight: 77.1115 kg

DRUGS (1)
  1. ZICAM INTENSE SINUS RELIEF [Suspect]
     Dosage: ONE TIME - ONE TIME; FEB/MAR2009-FEB/MAR 2009

REACTIONS (1)
  - ANOSMIA [None]
